FAERS Safety Report 22253250 (Version 1)
Quarter: 2023Q2

REPORT INFORMATION
  Report Type: Spontaneous
  Country: US (occurrence: US)
  Receive Date: 20230426
  Receipt Date: 20230426
  Transmission Date: 20230721
  Serious: Yes (Hospitalization)
  Sender: FDA-Public Use
  Company Number: US-ORG100016242-2023000129

PATIENT

DRUGS (3)
  1. EXPAREL [Suspect]
     Active Substance: BUPIVACAINE
     Indication: Nerve block
     Dosage: FOR PATIENTS WEIGHING }=60 KG
     Route: 050
  2. BUPIVACAINE HYDROCHLORIDE [Suspect]
     Active Substance: BUPIVACAINE HYDROCHLORIDE
     Indication: Nerve block
     Dosage: DOSE {2.5 MG KG^-1; FOR PATIENTS WEIGHING?{60 KG, DOSE WAS REDUCED
     Route: 050
  3. SODIUM CHLORIDE [Concomitant]
     Active Substance: SODIUM CHLORIDE
     Indication: Surgery
     Dosage: IF NECESSARY DILUTED TO A TOTAL VOLUME OF 80 ML
     Route: 050

REACTIONS (2)
  - Post procedural complication [Unknown]
  - Procedural nausea [Unknown]
